FAERS Safety Report 10625285 (Version 3)
Quarter: 2015Q1

REPORT INFORMATION
  Report Type: Spontaneous
  Country: CH (occurrence: None)
  Receive Date: 20141202
  Receipt Date: 20150224
  Transmission Date: 20150720
  Serious: Yes (Other)
  Sender: FDA-Public Use
  Company Number: 20140760

PATIENT
  Age: 25 Year
  Sex: Female
  Weight: 45 kg

DRUGS (1)
  1. FERINJECT [Suspect]
     Active Substance: FERRIC CARBOXYMALTOSE
     Indication: ANAEMIA
     Dosage: 500 MG (1 IN 1 TOTAL)
     Route: 041
     Dates: start: 20121031, end: 20121031

REACTIONS (4)
  - Dermatitis allergic [None]
  - Dyspnoea [None]
  - Paraesthesia oral [None]
  - Oral pruritus [None]

NARRATIVE: CASE EVENT DATE: 20121031
